FAERS Safety Report 15648058 (Version 1)
Quarter: 2018Q4

REPORT INFORMATION
  Report Type: Spontaneous
  Country: CA (occurrence: CA)
  Receive Date: 20181122
  Receipt Date: 20181122
  Transmission Date: 20190205
  Serious: Yes (Death)
  Sender: FDA-Public Use
  Company Number: CA-TEVA-2018-CA-979160

PATIENT
  Age: 47 Year
  Sex: Female
  Weight: 88 kg

DRUGS (10)
  1. CLONIDINE. [Concomitant]
     Active Substance: CLONIDINE
  2. LOSARTAN. [Concomitant]
     Active Substance: LOSARTAN
  3. IBUPROFEN. [Concomitant]
     Active Substance: IBUPROFEN
  4. RABEPRAZOLE [Concomitant]
     Active Substance: RABEPRAZOLE
  5. TIZANIDINE. [Concomitant]
     Active Substance: TIZANIDINE
  6. DULOXETINE. [Concomitant]
     Active Substance: DULOXETINE
  7. FENTANYL. [Suspect]
     Active Substance: FENTANYL
     Route: 065
  8. ZOLMITRIPTAN. [Concomitant]
     Active Substance: ZOLMITRIPTAN
  9. GABAPENTIN. [Suspect]
     Active Substance: GABAPENTIN
     Route: 065
  10. TRAZODONE [Suspect]
     Active Substance: TRAZODONE HYDROCHLORIDE
     Route: 065

REACTIONS (1)
  - Toxicity to various agents [Fatal]
